FAERS Safety Report 7000958-0 (Version None)
Quarter: 2010Q3

REPORT INFORMATION
  Report Type: 
  Country: None (occurrence: None)
  Receive Date: 20100920
  Receipt Date: 20100217
  Transmission Date: 20110219
  Serious: Yes (Other)
  Sender: FDA-Public Use
  Company Number: US-ASTRAZENECA-2009UW20756

PATIENT
  Sex: Female

DRUGS (7)
  1. SEROQUEL [Suspect]
     Dosage: 200 MG-300 MG
     Route: 048
     Dates: start: 20080722
  2. PREDNISONE [Concomitant]
     Dates: start: 20071009
  3. METOPROLOL TARTRATE [Concomitant]
     Dates: start: 20071014
  4. WARFARIN SODIUM [Concomitant]
     Dates: start: 20071112
  5. AMITRIPTYLINE HCL [Concomitant]
     Dates: start: 20080718
  6. GABAPENTIN [Concomitant]
     Dates: start: 20080716
  7. METFORMIN HCL [Concomitant]
     Dates: start: 20080718

REACTIONS (3)
  - DIABETES MELLITUS [None]
  - KETOACIDOSIS [None]
  - PANCREATITIS [None]
